FAERS Safety Report 6550365-X (Version None)
Quarter: 2010Q1

REPORT INFORMATION
  Report Type: 
  Country: None (occurrence: None)
  Receive Date: 20100125
  Receipt Date: 20100115
  Transmission Date: 20100710
  Serious: Yes (Other)
  Sender: FDA-Public Use
  Company Number: GXKR2010DK00952

PATIENT
  Sex: Male

DRUGS (2)
  1. METHOTREXATE [Suspect]
     Indication: RHEUMATOID ARTHRITIS
     Dosage: UNK
     Route: 065
     Dates: start: 20080409
  2. DEPO-MEDROL [Concomitant]
     Indication: RHEUMATOID ARTHRITIS
     Dosage: UNK
     Route: 030
     Dates: start: 20080409

REACTIONS (4)
  - BLOOD URINE PRESENT [None]
  - DENTAL CARIES [None]
  - SKIN INJURY [None]
  - TOOTH FRACTURE [None]
